FAERS Safety Report 4744357-0 (Version None)
Quarter: 2005Q3

REPORT INFORMATION
  Report Type: 
  Country: None (occurrence: None)
  Receive Date: 20050812
  Receipt Date: 20050513
  Transmission Date: 20060218
  Serious: Yes (Hospitalization)
  Sender: FDA-Public Use
  Company Number: US-MERCK-0505USA01938

PATIENT
  Age: 62 Year
  Sex: Male
  Weight: 77 kg

DRUGS (11)
  1. PERCOCET [Concomitant]
     Route: 065
  2. ENALAPRIL MALEATE [Concomitant]
     Route: 065
     Dates: start: 20011201, end: 20020401
  3. ALTACE [Concomitant]
     Route: 065
     Dates: start: 20020415, end: 20020101
  4. FOLIC ACID [Concomitant]
     Route: 065
  5. VIOXX [Suspect]
     Indication: PSORIATIC ARTHROPATHY
     Route: 048
     Dates: start: 19990101, end: 20030101
  6. TOPROL-XL [Concomitant]
     Route: 065
     Dates: start: 20011201
  7. PATANOL [Concomitant]
     Route: 065
  8. ENBREL [Concomitant]
     Route: 065
     Dates: start: 19990801, end: 20030101
  9. METHOTREXATE [Concomitant]
     Route: 065
     Dates: start: 19990505, end: 20031201
  10. PREDNISONE [Concomitant]
     Route: 065
  11. DARVOCET-N 100 [Concomitant]
     Route: 065

REACTIONS (8)
  - ANXIETY [None]
  - BLOOD CHOLESTEROL INCREASED [None]
  - CORONARY ARTERY DISEASE [None]
  - DEPRESSION [None]
  - HYPOTENSION [None]
  - MYOCARDIAL INFARCTION [None]
  - PERICARDIAL EFFUSION [None]
  - STRESS [None]
